FAERS Safety Report 19605251 (Version 2)
Quarter: 2021Q4

REPORT INFORMATION
  Report Type: Spontaneous
  Country: US (occurrence: US)
  Receive Date: 20210724
  Receipt Date: 20211129
  Transmission Date: 20220304
  Serious: Yes (Other)
  Sender: FDA-Public Use
  Company Number: US-TEVA-2021-US-1935272

PATIENT
  Age: 49 Year
  Sex: Male
  Weight: 90.7 kg

DRUGS (22)
  1. VALSARTAN [Suspect]
     Active Substance: VALSARTAN
     Indication: Hypertension
     Dosage: 320 MILLIGRAM DAILY;
     Route: 048
     Dates: start: 20160103, end: 20160202
  2. VALSARTAN [Suspect]
     Active Substance: VALSARTAN
     Indication: Hypertension
     Dosage: 320 MILLIGRAM DAILY;
     Route: 048
     Dates: start: 20160502, end: 20180906
  3. VALSARTAN [Suspect]
     Active Substance: VALSARTAN
     Indication: Hypertension
     Dosage: DOSE: 320 MG
     Route: 065
     Dates: start: 20170421, end: 20180415
  4. VALSARTAN [Suspect]
     Active Substance: VALSARTAN
     Indication: Hypertension
     Dosage: 160 MILLIGRAM DAILY;
     Route: 048
  5. VALSARTAN [Suspect]
     Active Substance: VALSARTAN
     Dosage: 320 MILLIGRAM DAILY;
     Route: 048
  6. VALGANCICLOVIR [Concomitant]
     Active Substance: VALGANCICLOVIR
     Indication: Cytomegalovirus infection
     Dosage: DOSE: 2 TABLETS (900 MG) DAILY
     Route: 048
     Dates: start: 2016, end: 20190711
  7. ASPIRIN [Concomitant]
     Active Substance: ASPIRIN
     Indication: Pyrexia
     Dosage: 81 MILLIGRAM DAILY;
     Route: 048
     Dates: start: 2016, end: 2019
  8. ASPIRIN [Concomitant]
     Active Substance: ASPIRIN
     Indication: Headache
  9. ASPIRIN [Concomitant]
     Active Substance: ASPIRIN
     Indication: Inflammation
  10. SULFAMETHOXAZOLE\TRIMETHOPRIM [Concomitant]
     Active Substance: SULFAMETHOXAZOLE\TRIMETHOPRIM
     Indication: Urinary tract infection
     Dosage: DOSE: 400-80 MG BY MOUTH DAILY
     Route: 048
     Dates: start: 2016, end: 2019
  11. FAMOTIDINE [Concomitant]
     Active Substance: FAMOTIDINE
     Indication: Gastrooesophageal reflux disease
     Dosage: DOSE: 20 MG
     Route: 048
     Dates: start: 2016, end: 2019
  12. TRADJENTA [Concomitant]
     Active Substance: LINAGLIPTIN
     Indication: Diabetes mellitus
     Dosage: 5 MILLIGRAM DAILY;
     Route: 048
     Dates: start: 2016, end: 2019
  13. LEVOFLOXACIN [Concomitant]
     Active Substance: LEVOFLOXACIN
     Indication: Infection
     Dosage: 500 MILLIGRAM DAILY; EARLY MORNING BEFORE BREAKFAST
     Route: 048
     Dates: start: 2016, end: 2019
  14. ALLOPURINOL [Concomitant]
     Active Substance: ALLOPURINOL
     Indication: Nephrolithiasis
     Dosage: 300 MILLIGRAM DAILY;
     Route: 048
     Dates: start: 2016, end: 2019
  15. HYDROCHLOROTHIAZIDE [Concomitant]
     Active Substance: HYDROCHLOROTHIAZIDE
     Indication: Hypertension
     Dosage: 25 MILLIGRAM DAILY;
     Route: 048
     Dates: start: 2016, end: 2019
  16. BACLOFEN [Concomitant]
     Active Substance: BACLOFEN
     Indication: Hiccups
     Dosage: DOSE: HALF TABLET BY MOUTH 3 TIMES DAILY
     Route: 048
     Dates: start: 2016, end: 2019
  17. BACLOFEN [Concomitant]
     Active Substance: BACLOFEN
     Indication: Muscle spasms
  18. AMLODIPINE BESYLATE [Concomitant]
     Active Substance: AMLODIPINE BESYLATE
     Indication: Hypertension
     Dosage: 5 MILLIGRAM DAILY;
     Route: 048
     Dates: start: 2010, end: 2019
  19. AMLODIPINE BESYLATE [Concomitant]
     Active Substance: AMLODIPINE BESYLATE
     Indication: Chest pain
  20. IRBESARTAN [Concomitant]
     Active Substance: IRBESARTAN
     Indication: Hypertension
     Dosage: 300 MILLIGRAM DAILY; EVERY MORNING
     Route: 048
     Dates: start: 2016, end: 2019
  21. AMOXICILLIN\CLAVULANIC ACID [Concomitant]
     Active Substance: AMOXICILLIN\CLAVULANIC ACID
     Dosage: DOSE: 875 MG
     Route: 048
     Dates: start: 2016, end: 2019
  22. OXYCODONE [Concomitant]
     Active Substance: OXYCODONE
     Indication: Pain
     Dosage: DOSE: EVERY 4 HOURS AS NEEDED
     Route: 048
     Dates: start: 2014, end: 2019

REACTIONS (1)
  - Hepatic cancer [Recovered/Resolved]
